FAERS Safety Report 8265145-7 (Version None)
Quarter: 2012Q2

REPORT INFORMATION
  Report Type: 
  Country: None (occurrence: None)
  Receive Date: 20120406
  Receipt Date: 20120323
  Transmission Date: 20120825
  Serious: Yes (Hospitalization)
  Sender: FDA-Public Use
  Company Number: DE-ROCHE-1052470

PATIENT
  Age: 57 Year
  Sex: Female
  Weight: 92 kg

DRUGS (7)
  1. TELAPREVIR [Suspect]
     Indication: HEPATITIS C
     Route: 048
     Dates: start: 20120106
  2. METOPROLOL SUCCINATE [Concomitant]
  3. RAMIPRIL [Concomitant]
  4. COPEGUS [Suspect]
     Indication: HEPATITIS C
     Route: 048
     Dates: start: 20120106
  5. TORSEMIDE [Concomitant]
  6. ALDACTONE [Concomitant]
  7. PEGINTERFERON ALFA-2A [Suspect]
     Indication: HEPATITIS C
     Route: 058
     Dates: start: 20120106

REACTIONS (2)
  - ERYSIPELAS [None]
  - ULCER [None]
